FAERS Safety Report 9866842 (Version 1)
Quarter: 2014Q1

REPORT INFORMATION
  Report Type: Spontaneous
  Country: US (occurrence: None)
  Receive Date: 20140131
  Receipt Date: 20140131
  Transmission Date: 20141002
  Serious: Yes (Death)
  Sender: FDA-Public Use
  Company Number: 2014AP000687

PATIENT
  Age: 46 Year
  Sex: Male

DRUGS (11)
  1. AMLODIPINE BESYLATE TABLETS [Suspect]
     Dosage: ; PO
     Route: 048
  2. METFORMIN [Suspect]
     Dosage: ; PO
     Route: 048
  3. GEMFIBROZIL [Suspect]
     Dosage: ; PO
     Route: 048
  4. PRAVASTATIN SODIUM TABLETS USP [Suspect]
     Dosage: ; PO
     Route: 048
  5. ALLOPURINOL TABLETS [Suspect]
     Dosage: ; PO
     Route: 048
  6. FAMOTIDINE [Suspect]
     Dosage: ; PO
     Route: 048
  7. METOPROLOL [Suspect]
     Dosage: ; PO
     Route: 048
  8. CARISOPRODOL [Concomitant]
     Dosage: ; PO
     Route: 048
  9. ALPRAZOLAM [Suspect]
     Dosage: ; PO
     Route: 048
  10. HYDROCODONE [Suspect]
     Dosage: ; PO
     Route: 048
  11. GLYBURIDE [Suspect]
     Dosage: ; PO
     Route: 048

REACTIONS (1)
  - Completed suicide [None]
